FAERS Safety Report 9381319 (Version 2)
Quarter: 2013Q3

REPORT INFORMATION
  Report Type: Spontaneous
  Country: US (occurrence: US)
  Receive Date: 20130703
  Receipt Date: 20130909
  Transmission Date: 20140515
  Serious: Yes (Hospitalization)
  Sender: FDA-Public Use
  Company Number: US-SANOFI-AVENTIS-2013SA066418

PATIENT
  Age: 73 Year
  Sex: Female
  Weight: 117 kg

DRUGS (2)
  1. LANTUS SOLOSTAR [Suspect]
     Indication: DIABETES MELLITUS
     Dosage: DOSE:40 UNIT(S)
     Route: 065
     Dates: start: 1996
  2. SOLOSTAR [Concomitant]
     Indication: DIABETES MELLITUS

REACTIONS (3)
  - Arthropathy [Unknown]
  - Weight decreased [Unknown]
  - Incorrect product storage [Unknown]
